FAERS Safety Report 4854894-6 (Version None)
Quarter: 2005Q4

REPORT INFORMATION
  Report Type: 
  Country: None (occurrence: None)
  Receive Date: 20051213
  Receipt Date: 20051130
  Transmission Date: 20060501
  Serious: Yes (Death, Hospitalization, Other)
  Sender: FDA-Public Use
  Company Number: 2005141163

PATIENT
  Age: 76 Year
  Sex: Female
  Weight: 55.8 kg

DRUGS (4)
  1. FRAGMIN [Suspect]
     Indication: ANTICOAGULANT THERAPY
     Dosage: 2000 I.U., INTRAVENOUS
     Route: 042
     Dates: start: 20050929, end: 20050929
  2. FUTHAN (NAFAMOSTAT MESILATE) [Suspect]
     Indication: ANTICOAGULANT THERAPY
     Dates: start: 20050928, end: 20050928
  3. GYCYRRHIXIN/GLYCINE/L-CYSTEINE HYDROCHLORIDE (AMINOACETIC ACID, CYSTEI [Concomitant]
  4. GLYCEOL (FRUTOSE, GLYCEROL) [Concomitant]

REACTIONS (7)
  - DRUG HYPERSENSITIVITY [None]
  - EOSINOPHIL COUNT INCREASED [None]
  - PROCEDURAL COMPLICATION [None]
  - PYREXIA [None]
  - SHOCK [None]
  - THALAMUS HAEMORRHAGE [None]
  - WHITE BLOOD CELL COUNT INCREASED [None]
